FAERS Safety Report 10945783 (Version 1)
Quarter: 2015Q1

REPORT INFORMATION
  Report Type: Spontaneous
  Country: GB (occurrence: GB)
  Receive Date: 20150323
  Receipt Date: 20150323
  Transmission Date: 20150721
  Serious: Yes (Other)
  Sender: FDA-Public Use
  Company Number: GB-PFIZER INC-2015095178

PATIENT
  Age: 72 Year
  Sex: Male
  Weight: 78 kg

DRUGS (18)
  1. MACROGOL [Concomitant]
     Active Substance: POLYETHYLENE GLYCOLS
     Dosage: 1 DF, 2X/DAY
     Dates: start: 20150127
  2. OMEPRAZOLE. [Concomitant]
     Active Substance: OMEPRAZOLE
     Dosage: 2 DF, 1X/DAY
     Dates: start: 20150127
  3. BIOXTRA [Concomitant]
     Dosage: UNK
     Dates: start: 20150127
  4. HYOSCINE BUTYLBROMIDE [Concomitant]
     Active Substance: BUTYLSCOPOLAMINE
     Dosage: 20 MG, 2 HOURLY AS NEEDED FOR RESP SECRET
     Dates: start: 20150127
  5. MORPHINE SULFATE. [Concomitant]
     Active Substance: MORPHINE SULFATE
     Dosage: 70 MG, VIA CONTINUOUS SUBCUTANEOUS INFUSION
     Route: 058
     Dates: start: 20141204, end: 20150216
  6. CITALOPRAM [Concomitant]
     Active Substance: CITALOPRAM HYDROBROMIDE
     Indication: DEPRESSED MOOD
     Dosage: 1 DF, UNK
     Dates: start: 20141219
  7. LEVOMEPROMAZINE [Concomitant]
     Active Substance: LEVOMEPROMAZINE
     Indication: NAUSEA
     Dosage: 6.25 MG, HOURLY SUBCUT AS NEEDED
     Route: 058
     Dates: start: 20150127
  8. LORAZEPAM. [Concomitant]
     Active Substance: LORAZEPAM
     Dosage: 0.5 DF, EVERY 4 HRS
     Dates: start: 20150209
  9. PARACETAMOL [Concomitant]
     Active Substance: ACETAMINOPHEN
     Indication: PAIN
     Dosage: 2 DF, 4X/DAY
     Dates: start: 20141028
  10. GABAPENTIN. [Suspect]
     Active Substance: GABAPENTIN
     Dosage: UNK
  11. DOUBLEBASE [Concomitant]
     Active Substance: ISOPROPYL MYRISTATE\PARAFFIN
     Dosage: UNK UNK, AS NEEDED
     Dates: start: 20120208
  12. MIDAZOLAM [Concomitant]
     Active Substance: MIDAZOLAM\MIDAZOLAM HYDROCHLORIDE
     Dosage: 2-5 TO 5MG SUBCUT HOURLY
     Route: 058
     Dates: start: 20150127
  13. BENZYDAMINE HYDROCHLORIDE [Concomitant]
     Active Substance: BENZYDAMINE HYDROCHLORIDE
     Dosage: 5 TO 10 ML TO BE TAKEN THREE TIMES DAILY WHEN REQUIRED
     Dates: start: 20150127
  14. HYDROXOCOBALAMIN [Concomitant]
     Active Substance: HYDROXOCOBALAMIN
     Dosage: UNK
     Dates: start: 20150127
  15. CYCLIZINE [Concomitant]
     Active Substance: CYCLIZINE
     Dosage: THREE TIMES DAILY WHEN REQUIRED.
     Dates: start: 20150127
  16. FUROSEMIDE. [Concomitant]
     Active Substance: FUROSEMIDE
     Dosage: 1 DF, 1X/DAY EACH MORNING
     Dates: start: 20150127
  17. LANSOPRAZOLE. [Concomitant]
     Active Substance: LANSOPRAZOLE
     Dosage: 1 DF, 1X/DAY
     Dates: start: 20141028, end: 20150127
  18. MST CONTINUS ^ASTA MEDICA^ [Concomitant]
     Dosage: 2 DF, UNK
     Dates: start: 20150127

REACTIONS (2)
  - Hallucination [Recovered/Resolved]
  - Dizziness [Recovered/Resolved]

NARRATIVE: CASE EVENT DATE: 20150303
